FAERS Safety Report 8393476-9 (Version None)
Quarter: 2012Q2

REPORT INFORMATION
  Report Type: 
  Country: None (occurrence: None)
  Receive Date: 20120529
  Receipt Date: 20120524
  Transmission Date: 20120825
  Serious: Yes (Other)
  Sender: FDA-Public Use
  Company Number: GB-ROCHE-1072281

PATIENT
  Sex: Female
  Weight: 63 kg

DRUGS (5)
  1. MABTHERA [Suspect]
     Indication: RHEUMATOID ARTHRITIS
     Dates: start: 20070810
  2. ETODOLAC [Concomitant]
  3. LEVOTHYROXINE SODIUM [Concomitant]
  4. RABEPRAZOLE SODIUM [Concomitant]
  5. ADCAL - D3 [Concomitant]

REACTIONS (3)
  - HERPES ZOSTER [None]
  - POST HERPETIC NEURALGIA [None]
  - MYOCARDIAL INFARCTION [None]
